FAERS Safety Report 11262968 (Version 6)
Quarter: 2015Q4

REPORT INFORMATION
  Report Type: Spontaneous
  Country: US (occurrence: US)
  Receive Date: 20150710
  Receipt Date: 20151001
  Transmission Date: 20160304
  Serious: Yes (Death, Life-Threatening, Hospitalization, Disabling, Other)
  Sender: FDA-Public Use
  Company Number: US-BMSGILMSD-2015-0161813

PATIENT
  Age: 48 Year
  Sex: Male
  Weight: 74.38 kg

DRUGS (1)
  1. ATRIPLA [Suspect]
     Active Substance: EFAVIRENZ\EMTRICITABINE\TENOFOVIR DISOPROXIL FUMARATE
     Indication: HIV INFECTION
     Dosage: UNK
     Route: 048
     Dates: start: 20150520, end: 20150611

REACTIONS (5)
  - Acute hepatic failure [Fatal]
  - Abdominal pain [Unknown]
  - Weight decreased [Unknown]
  - Hepatic necrosis [Not Recovered/Not Resolved]
  - Drug-induced liver injury [Unknown]
